FAERS Safety Report 4698179-X (Version None)
Quarter: 2005Q2

REPORT INFORMATION
  Report Type: 
  Country: None (occurrence: None)
  Receive Date: 20050623
  Receipt Date: 20050621
  Transmission Date: 20051028
  Serious: Yes (Other)
  Sender: FDA-Public Use
  Company Number: 2005011715

PATIENT
  Age: 56 Year
  Sex: Female

DRUGS (2)
  1. QUILONUM RETARD [Suspect]
     Route: 048
  2. ALCOHOL [Suspect]
     Route: 048

REACTIONS (4)
  - COLD SWEAT [None]
  - HALITOSIS [None]
  - INTENTIONAL MISUSE [None]
  - SUICIDE ATTEMPT [None]
